FAERS Safety Report 23049536 (Version 1)
Quarter: 2023Q4

REPORT INFORMATION
  Report Type: Spontaneous
  Country: US (occurrence: None)
  Receive Date: 20231007
  Receipt Date: 20231007
  Transmission Date: 20240110
  Serious: Yes (Other)
  Sender: FDA-Public Use
  Company Number: None

PATIENT
  Sex: Female

DRUGS (10)
  1. AVONEX PEN [Suspect]
     Active Substance: INTERFERON BETA-1A
     Indication: Multiple sclerosis
     Route: 030
     Dates: start: 20170808
  2. ADDERRALL TAB [Concomitant]
  3. DIAZEMPAM CON [Concomitant]
  4. DULOXETINE HYDROCHLORIDE [Concomitant]
     Active Substance: DULOXETINE HYDROCHLORIDE
  5. MULTI-VITAMIN TAB [Concomitant]
  6. OXCARBAZEPIN TAB [Concomitant]
  7. BUPROPHN HCL [Concomitant]
  8. DIAXEPAM TAB [Concomitant]
  9. LAMOATRIGINE [Concomitant]
  10. MODAFINIL [Concomitant]
     Active Substance: MODAFINIL

REACTIONS (2)
  - Seizure [None]
  - Therapy interrupted [None]
